FAERS Safety Report 8235539-4 (Version None)
Quarter: 2012Q1

REPORT INFORMATION
  Report Type: 
  Country: None (occurrence: None)
  Receive Date: 20120326
  Receipt Date: 20120319
  Transmission Date: 20120608
  Serious: Yes (Death, Other)
  Sender: FDA-Public Use
  Company Number: US-BAYER-2012-003255

PATIENT
  Age: 74 Year
  Sex: Female
  Weight: 80.726 kg

DRUGS (7)
  1. IMODIUM [Concomitant]
  2. CLONIDINE [Concomitant]
     Indication: HYPERTENSION
     Dosage: 0.1 NOT APPL., QD
     Dates: start: 20120120
  3. OXYCONTIN [Concomitant]
     Indication: PAIN
     Dosage: 20 MG, BID
  4. DILTIAZEM HCL [Concomitant]
     Indication: ATRIAL FIBRILLATION
  5. ATENOLOL [Concomitant]
     Dosage: 100 MG, QD
     Dates: end: 20120201
  6. NEXAVAR [Suspect]
     Indication: METASTATIC RENAL CELL CARCINOMA
     Dosage: 400 MG, BID
     Route: 048
     Dates: start: 20120109, end: 20120127
  7. OXYCODONE HCL [Concomitant]
     Indication: BREAKTHROUGH PAIN
     Dosage: 5 MG, UNK

REACTIONS (14)
  - METASTATIC RENAL CELL CARCINOMA [None]
  - BLOOD URINE PRESENT [None]
  - BLOOD PRESSURE INCREASED [None]
  - SKIN DISCOLOURATION [None]
  - HYPOAESTHESIA [None]
  - CEREBROVASCULAR DISORDER [None]
  - RASH [None]
  - PERIPHERAL COLDNESS [None]
  - MUSCULAR WEAKNESS [None]
  - LIVER DISORDER [None]
  - DIARRHOEA [None]
  - PEDAL PULSE DECREASED [None]
  - JAUNDICE [None]
  - OCULAR ICTERUS [None]
